FAERS Safety Report 17508406 (Version 1)
Quarter: 2020Q1

REPORT INFORMATION
  Report Type: Spontaneous
  Country: US (occurrence: US)
  Receive Date: 20200306
  Receipt Date: 20200306
  Transmission Date: 20200409
  Serious: No
  Sender: FDA-Public Use
  Company Number: US-DSJP-DSU-2020-107400

PATIENT

DRUGS (5)
  1. BENICAR HCT [Suspect]
     Active Substance: HYDROCHLOROTHIAZIDE\OLMESARTAN MEDOXOMIL
     Indication: HYPERTENSION
     Dosage: 1 DF MG, QD
     Route: 048
     Dates: start: 2012
  2. OLMESARTAN HCT AG [Suspect]
     Active Substance: HYDROCHLOROTHIAZIDE\OLMESARTAN MEDOXOMIL
     Dosage: 1 DF, QD, 5-6 WEEKS
     Route: 048
     Dates: start: 2019, end: 2019
  3. BENICAR HCT [Suspect]
     Active Substance: HYDROCHLOROTHIAZIDE\OLMESARTAN MEDOXOMIL
     Dosage: 1 DF, QD
     Route: 048
     Dates: start: 2019
  4. OLMESARTAN HCT AG [Suspect]
     Active Substance: HYDROCHLOROTHIAZIDE\OLMESARTAN MEDOXOMIL
     Indication: HYPERTENSION
     Dosage: 1 DF, QD, 5-6 WEEKS
     Route: 048
     Dates: start: 2012
  5. BENICAR HCT [Suspect]
     Active Substance: HYDROCHLOROTHIAZIDE\OLMESARTAN MEDOXOMIL
     Dosage: 1 DF, QD
     Route: 048
     Dates: end: 2019

REACTIONS (4)
  - Hypersensitivity [Recovered/Resolved]
  - Agitation [Recovered/Resolved]
  - Muscle spasms [Recovered/Resolved]
  - Anxiety [Recovered/Resolved]
